FAERS Safety Report 16021751 (Version 1)
Quarter: 2019Q1

REPORT INFORMATION
  Report Type: Spontaneous
  Country: US (occurrence: US)
  Receive Date: 20190205
  Receipt Date: 20190205
  Transmission Date: 20190418
  Serious: No
  Sender: FDA-Public Use
  Company Number: None

PATIENT

DRUGS (2)
  1. ZOHYDRO [Suspect]
     Active Substance: HYDROCODONE BITARTRATE
     Route: 048
  2. ZOHYDRO [Suspect]
     Active Substance: HYDROCODONE BITARTRATE
     Route: 048

REACTIONS (3)
  - Incorrect dose administered [None]
  - Product dispensing error [None]
  - Product selection error [None]
